FAERS Safety Report 13368124 (Version 2)
Quarter: 2017Q3

REPORT INFORMATION
  Report Type: Spontaneous
  Country: GB (occurrence: GB)
  Receive Date: 20170324
  Receipt Date: 20170806
  Transmission Date: 20171127
  Serious: Yes (Other)
  Sender: FDA-Public Use
  Company Number: GB-TEVA-751266ACC

PATIENT
  Age: 34 Year
  Sex: Female
  Weight: 66.67 kg

DRUGS (7)
  1. AMOXICILLIN. [Concomitant]
     Active Substance: AMOXICILLIN
     Indication: PNEUMONIA
     Route: 041
  2. CYCLIZINE [Interacting]
     Active Substance: CYCLIZINE
     Indication: VOMITING
     Dosage: UNKNOWN
     Route: 041
     Dates: start: 20170302, end: 20170302
  3. DULOXETINE. [Suspect]
     Active Substance: DULOXETINE
     Indication: NEURALGIA
     Dosage: 1 DOSAGE FORMS DAILY; 60MG IN MORNING AND WHEN PAIN REALLY BAD, 30MG T NIGHT.
  4. CLARITHROMYCIN. [Concomitant]
     Active Substance: CLARITHROMYCIN
     Indication: PNEUMONIA
     Route: 041
  5. IBUPROFEN. [Concomitant]
     Active Substance: IBUPROFEN
  6. ONDANSETRON [Concomitant]
     Active Substance: ONDANSETRON
     Indication: PROPHYLAXIS OF NAUSEA AND VOMITING
     Dates: start: 20170301
  7. PARACETAMOL [Concomitant]
     Active Substance: ACETAMINOPHEN

REACTIONS (5)
  - Tachycardia [Recovered/Resolved with Sequelae]
  - Palpitations [Not Recovered/Not Resolved]
  - Dyspnoea [Unknown]
  - Respiratory depression [Unknown]
  - Drug interaction [Unknown]

NARRATIVE: CASE EVENT DATE: 20170302
